FAERS Safety Report 6439042-3 (Version None)
Quarter: 2009Q4

REPORT INFORMATION
  Report Type: 
  Country: None (occurrence: None)
  Receive Date: 20091112
  Receipt Date: 20080728
  Transmission Date: 20100525
  Serious: Yes (Hospitalization)
  Sender: FDA-Public Use
  Company Number: 200813903

PATIENT
  Age: 62 Year
  Sex: Female
  Weight: 102.9665 kg

DRUGS (5)
  1. PRIVIGEN [Suspect]
     Indication: DEMYELINATING POLYNEUROPATHY
     Dosage: 85 G DAILY IV
     Route: 042
     Dates: start: 20080610, end: 20080612
  2. PRIVIGEN [Suspect]
     Dosage: IV
     Route: 042
  3. PRIVIGEN [Suspect]
     Dosage: IV
     Route: 042
  4. PRIVIGEN [Suspect]
     Dosage: IV
     Route: 042
  5. IRON SUPPLEMENTS [Concomitant]

REACTIONS (2)
  - ASTHENIA [None]
  - HAEMOLYTIC ANAEMIA [None]
